FAERS Safety Report 9796604 (Version 1)
Quarter: 2014Q1

REPORT INFORMATION
  Report Type: Spontaneous
  Country: US (occurrence: US)
  Receive Date: 20140103
  Receipt Date: 20140103
  Transmission Date: 20141002
  Serious: Yes (Other)
  Sender: FDA-Public Use
  Company Number: US-ELI_LILLY_AND_COMPANY-US201312008781

PATIENT
  Age: 82 Year
  Sex: Male

DRUGS (4)
  1. HUMALOG LISPRO [Suspect]
     Indication: HYPERGLYCAEMIA
     Dosage: 3 U, PRN
     Route: 065
  2. COZAAR [Concomitant]
  3. CLONIDINE [Concomitant]
  4. AVODART [Concomitant]

REACTIONS (3)
  - Blood pressure increased [Recovered/Resolved]
  - Blood pressure decreased [Unknown]
  - Intentional drug misuse [Unknown]
